FAERS Safety Report 5190734-6 (Version None)
Quarter: 2006Q4

REPORT INFORMATION
  Report Type: 
  Country: None (occurrence: None)
  Receive Date: 20061222
  Receipt Date: 20061215
  Transmission Date: 20070319
  Serious: Yes (Death)
  Sender: FDA-Public Use
  Company Number: IT-ROCHE-475538

PATIENT
  Age: 20 Year
  Sex: Male

DRUGS (3)
  1. ROCEPHIN [Suspect]
     Dosage: STRENGHT AND FORMULATION = VIAL 1G
     Route: 030
     Dates: start: 20061213, end: 20061213
  2. AULIN [Concomitant]
     Route: 048
  3. ACETAMINOPHEN [Concomitant]
     Route: 065

REACTIONS (2)
  - ANAPHYLACTIC SHOCK [None]
  - CARDIO-RESPIRATORY ARREST [None]
